FAERS Safety Report 4311973-X (Version None)
Quarter: 2004Q1

REPORT INFORMATION
  Report Type: 
  Country: None (occurrence: None)
  Receive Date: 20040303
  Receipt Date: 20040217
  Transmission Date: 20041129
  Serious: Yes (Hospitalization, Other)
  Sender: FDA-Public Use
  Company Number: DE-SHR-04-021304

PATIENT
  Sex: Male
  Weight: 82 kg

DRUGS (7)
  1. CAMPATH [Suspect]
     Indication: T-CELL PROLYMPHOCYTIC LEUKAEMIA
     Dosage: 3 MG, 1X/DAY; 30 MG, 3X/DAY
     Dates: start: 20000417, end: 20000424
  2. CAMPATH [Suspect]
     Indication: T-CELL PROLYMPHOCYTIC LEUKAEMIA
     Dosage: 3 MG, 1X/DAY; 30 MG, 3X/DAY
     Dates: start: 20000424, end: 20000707
  3. ZOVIRAX/SCH/(ACICLOVIR SODIUM) [Concomitant]
  4. KEPINOL [Concomitant]
  5. ALLOPURINOL [Concomitant]
  6. OMEPRAZOLE [Concomitant]
  7. AMPHOTERICIN B [Concomitant]

REACTIONS (5)
  - CHILLS [None]
  - CYTOMEGALOVIRUS CHORIORETINITIS [None]
  - PYREXIA [None]
  - RENAL CELL CARCINOMA STAGE UNSPECIFIED [None]
  - TACHYCARDIA [None]
